FAERS Safety Report 6902503-4 (Version None)
Quarter: 2010Q3

REPORT INFORMATION
  Report Type: 
  Country: None (occurrence: None)
  Receive Date: 20100730
  Receipt Date: 20100714
  Transmission Date: 20110219
  Serious: Yes (Hospitalization, Disabling, Other)
  Sender: FDA-Public Use
  Company Number: 2010001143

PATIENT
  Age: 62 Year
  Sex: Female

DRUGS (37)
  1. ERLOTINIB (ERLOTINIB) (TABLET) (ERLOTINIB) [Suspect]
     Indication: HEPATIC NEOPLASM MALIGNANT
     Dosage: ORAL; (0 MG); (150 MG, ORAL); (100 MG), ORAL
     Route: 048
     Dates: start: 20100312, end: 20100319
  2. ERLOTINIB (ERLOTINIB) (TABLET) (ERLOTINIB) [Suspect]
     Indication: HEPATIC NEOPLASM MALIGNANT
     Dosage: ORAL; (0 MG); (150 MG, ORAL); (100 MG), ORAL
     Route: 048
     Dates: start: 20100320, end: 20100322
  3. ERLOTINIB (ERLOTINIB) (TABLET) (ERLOTINIB) [Suspect]
     Indication: HEPATIC NEOPLASM MALIGNANT
     Dosage: ORAL; (0 MG); (150 MG, ORAL); (100 MG), ORAL
     Route: 048
     Dates: start: 20100323, end: 20100419
  4. ERLOTINIB (ERLOTINIB) (TABLET) (ERLOTINIB) [Suspect]
     Indication: HEPATIC NEOPLASM MALIGNANT
     Dosage: ORAL; (0 MG); (150 MG, ORAL); (100 MG), ORAL
     Route: 048
     Dates: start: 20100420, end: 20100506
  5. ERLOTINIB (ERLOTINIB) (TABLET) (ERLOTINIB) [Suspect]
     Indication: HEPATIC NEOPLASM MALIGNANT
     Dosage: ORAL; (0 MG); (150 MG, ORAL); (100 MG), ORAL
     Route: 048
     Dates: start: 20100507, end: 20100513
  6. ERLOTINIB (ERLOTINIB) (TABLET) (ERLOTINIB) [Suspect]
     Indication: HEPATIC NEOPLASM MALIGNANT
     Dosage: ORAL; (0 MG); (150 MG, ORAL); (100 MG), ORAL
     Route: 048
     Dates: start: 20100514, end: 20100603
  7. ERLOTINIB (ERLOTINIB) (TABLET) (ERLOTINIB) [Suspect]
     Indication: HEPATIC NEOPLASM MALIGNANT
     Dosage: ORAL; (0 MG); (150 MG, ORAL); (100 MG), ORAL
     Route: 048
     Dates: start: 20100604, end: 20100701
  8. ERLOTINIB (ERLOTINIB) (TABLET) (ERLOTINIB) [Suspect]
     Indication: HEPATIC NEOPLASM MALIGNANT
     Dosage: ORAL; (0 MG); (150 MG, ORAL); (100 MG), ORAL
     Route: 048
     Dates: start: 20100702
  9. SORAFENIB [Suspect]
     Indication: HEPATIC NEOPLASM MALIGNANT
     Dosage: ORAL
     Route: 048
     Dates: start: 20100313, end: 20100318
  10. MIXTARD (INITARD) [Concomitant]
  11. PROPRANOLOL [Concomitant]
  12. RAMIPRIL [Concomitant]
  13. MODURETIC 5-50 [Concomitant]
  14. VYTORIN [Concomitant]
  15. ALENDRATE (ALENDRONATE SODIUM) [Concomitant]
  16. VALIUM [Concomitant]
  17. FLEXOTARD (DICLOFENAC SODIUM) [Concomitant]
  18. BETAMIN (3- (5-AMINO-2,4-DIIODOPHENYL) -ALANIN) [Concomitant]
  19. ENDONE (OXYCODONE HYDROCHLORIDE) [Concomitant]
  20. ACETAMINOPHEN [Concomitant]
  21. HEPARIN [Concomitant]
  22. PREDNISOLONE [Concomitant]
  23. OXAZEPAM [Concomitant]
  24. VITAMINORUM (KAPSOVIT) [Concomitant]
  25. FLUTICASONE PROPIONATE [Concomitant]
  26. SALBUTAMOL (SALBUTAMOL) [Concomitant]
  27. TEMAZEPAM [Concomitant]
  28. ZOLPIDEM [Concomitant]
  29. METOCLOPRAMIDE [Concomitant]
  30. LOPERAMIDE (LOPERAMIDE) [Concomitant]
  31. METRONIDAZOLE [Concomitant]
  32. ZOFRAN [Concomitant]
  33. IPTRATROPIUM BROMIDE (IPTRATROPIUM BROMIDE) [Concomitant]
  34. PROCHLORPERAZINE MALEATE [Concomitant]
  35. DOMPERIDONE (DOMPERIDONE) [Concomitant]
  36. MIRTAZAPINE [Concomitant]
  37. HYDROCORTONE [Concomitant]

REACTIONS (6)
  - BLOOD BILIRUBIN INCREASED [None]
  - ENCEPHALITIS [None]
  - GAIT DISTURBANCE [None]
  - HEPATIC ENCEPHALOPATHY [None]
  - PRODUCTIVE COUGH [None]
  - RESPIRATORY TRACT INFECTION [None]
